FAERS Safety Report 17517350 (Version 1)
Quarter: 2020Q1

REPORT INFORMATION
  Report Type: Spontaneous
  Country: US (occurrence: US)
  Receive Date: 20200309
  Receipt Date: 20200309
  Transmission Date: 20200409
  Serious: No
  Sender: FDA-Public Use
  Company Number: US-SA-2020SA057746

PATIENT
  Age: 55 Year
  Sex: Female

DRUGS (2)
  1. DUPIXENT [Suspect]
     Active Substance: DUPILUMAB
     Indication: ASTHMA
  2. DUPIXENT [Suspect]
     Active Substance: DUPILUMAB
     Indication: SINUSITIS
     Dosage: 300 MG, QOW
     Dates: start: 20200120

REACTIONS (8)
  - Injection site swelling [Unknown]
  - Injection site rash [Unknown]
  - Product use in unapproved indication [Unknown]
  - Injection site scab [Unknown]
  - Injection site erythema [Unknown]
  - Injection site pain [Unknown]
  - Injection site dryness [Unknown]
  - Injection site pruritus [Unknown]

NARRATIVE: CASE EVENT DATE: 202001
